FAERS Safety Report 8624442-3 (Version None)
Quarter: 2012Q3

REPORT INFORMATION
  Report Type: 
  Country: None (occurrence: None)
  Receive Date: 20120827
  Receipt Date: 20120820
  Transmission Date: 20120928
  Serious: Yes (Other)
  Sender: FDA-Public Use
  Company Number: US-PFIZER INC-2012161409

PATIENT
  Age: 69 Year
  Sex: Female

DRUGS (12)
  1. LIPITOR [Suspect]
  2. AFINITOR [Suspect]
     Indication: BREAST CANCER
  3. TRAMADOL [Concomitant]
     Dosage: 200 MG, 1X/DAY
     Route: 048
  4. VITAMIN D [Concomitant]
     Dosage: 5000 MG, EVERY OTHER DAY
     Route: 048
  5. SUTENT [Suspect]
     Indication: METASTATIC RENAL CELL CARCINOMA
     Dosage: 25 MG, UNK
     Route: 048
     Dates: start: 20110419, end: 20120601
  6. NOLVADEX [Concomitant]
     Dosage: 20 MG, 1X/DAY
     Route: 048
  7. OXYCODONE [Concomitant]
     Dosage: 5 MG, EVERY 4 HRS
     Route: 048
  8. TIZANIDINE [Concomitant]
     Dosage: 2 MG, EVERY DAY BEFORE SLEEP
     Route: 048
  9. TYLENOL [Concomitant]
     Route: 048
  10. OYSTCAL [Concomitant]
     Dosage: 500 MG, 4X/DAY
     Route: 048
  11. BACTRIM [Concomitant]
     Route: 048
  12. NITROGLYCERIN [Concomitant]
     Dosage: 1 SPRAY, AS NEEDED
     Route: 048

REACTIONS (3)
  - DISEASE PROGRESSION [None]
  - URINARY TRACT INFECTION [None]
  - METASTATIC RENAL CELL CARCINOMA [None]
